FAERS Safety Report 4829961-3 (Version None)
Quarter: 2005Q4

REPORT INFORMATION
  Report Type: 
  Country: None (occurrence: None)
  Receive Date: 20051114
  Receipt Date: 20051102
  Transmission Date: 20060501
  Serious: Yes (Other)
  Sender: FDA-Public Use
  Company Number: 2005140924

PATIENT
  Age: 72 Year
  Sex: Female

DRUGS (3)
  1. GENOTROPIN [Suspect]
     Indication: ILL-DEFINED DISORDER
     Dates: start: 20000101
  2. HYDROCORTISOONE (HYDROCORTISONE) [Concomitant]
  3. T4 (LEVOTHYROXINE SODIUM) [Concomitant]

REACTIONS (2)
  - COLON ADENOMA [None]
  - COLONIC POLYP [None]
